FAERS Safety Report 7256705-0 (Version None)
Quarter: 2011Q1

REPORT INFORMATION
  Report Type: 
  Country: None (occurrence: None)
  Receive Date: 20110129
  Receipt Date: 20100827
  Transmission Date: 20110831
  Serious: Yes (Other)
  Sender: FDA-Public Use
  Company Number: US-ABBOTT-10P-163-0663207-00

PATIENT
  Sex: Female
  Weight: 74.91 kg

DRUGS (4)
  1. MECLIZINE [Suspect]
     Indication: DIZZINESS
     Route: 048
     Dates: start: 20100401, end: 20100501
  2. HUMIRA [Suspect]
     Route: 058
     Dates: start: 20050101, end: 20060101
  3. METHOTREXATE [Concomitant]
     Indication: PRODUCT USED FOR UNKNOWN INDICATION
     Route: 048
  4. HUMIRA [Suspect]
     Indication: RHEUMATOID ARTHRITIS
     Route: 058
     Dates: start: 20060101

REACTIONS (7)
  - DIZZINESS [None]
  - ASTHENIA [None]
  - HYPERHIDROSIS [None]
  - SCAB [None]
  - ARTERIOSCLEROSIS CORONARY ARTERY [None]
  - DIARRHOEA [None]
  - VISUAL IMPAIRMENT [None]
